FAERS Safety Report 4892482-6 (Version None)
Quarter: 2006Q1

REPORT INFORMATION
  Report Type: 
  Country: None (occurrence: None)
  Receive Date: 20060126
  Receipt Date: 20051206
  Transmission Date: 20060701
  Serious: No
  Sender: FDA-Public Use
  Company Number: US-BRISTOL-MYERS SQUIBB COMPANY-13207444

PATIENT
  Age: 6 Year
  Sex: Male

DRUGS (1)
  1. CEFZIL [Suspect]
     Indication: SINUSITIS
     Dates: start: 20051205

REACTIONS (1)
  - HYPERSENSITIVITY [None]
